FAERS Safety Report 6094449-1 (Version None)
Quarter: 2009Q1

REPORT INFORMATION
  Report Type: 
  Country: None (occurrence: None)
  Receive Date: 20090224
  Receipt Date: 20090202
  Transmission Date: 20090719
  Serious: Yes (Hospitalization)
  Sender: FDA-Public Use
  Company Number: 2009S1001880

PATIENT
  Age: 31 Year
  Sex: Female

DRUGS (6)
  1. NIFEDIPINE [Suspect]
     Indication: TOCOLYSIS
     Dosage: 40 MG; ONCE; ORAL; 40 MG; Q12H
     Route: 048
  2. NICARDIPINE HCL [Suspect]
     Indication: TOCOLYSIS
     Dosage: 4 MG; EVERY HOUR; INTRAVENOUS
     Route: 042
  3. ATOSIBAN [Concomitant]
  4. ROPIVACAINE [Concomitant]
  5. SUFENTANIL [Concomitant]
  6. BETAMETHASONE [Concomitant]

REACTIONS (8)
  - ACUTE PULMONARY OEDEMA [None]
  - C-REACTIVE PROTEIN INCREASED [None]
  - HYPOXIA [None]
  - LUNG CONSOLIDATION [None]
  - OEDEMA PERIPHERAL [None]
  - PLEURAL EFFUSION [None]
  - PYREXIA [None]
  - RESPIRATORY RATE INCREASED [None]
